FAERS Safety Report 12756426 (Version 1)
Quarter: 2016Q3

REPORT INFORMATION
  Report Type: Spontaneous
  Country: BE (occurrence: BE)
  Receive Date: 20160916
  Receipt Date: 20160916
  Transmission Date: 20161109
  Serious: Yes (Death, Other)
  Sender: FDA-Public Use
  Company Number: BE-ASTRAZENECA-2016SE97339

PATIENT
  Age: 45 Year
  Sex: Female

DRUGS (20)
  1. AFINITOR [Concomitant]
     Active Substance: EVEROLIMUS
  2. CHEMOTHERAPY [Concomitant]
     Active Substance: UNSPECIFIED INGREDIENT
  3. NAVELBINE [Concomitant]
     Active Substance: VINORELBINE TARTRATE
  4. CELLTOP [Concomitant]
     Active Substance: ETOPOSIDE
  5. DOCETAXEL. [Concomitant]
     Active Substance: DOCETAXEL
  6. LETROZOLE. [Concomitant]
     Active Substance: LETROZOLE
     Dates: start: 2004
  7. PALBOCICLIB [Concomitant]
     Active Substance: PALBOCICLIB
  8. TAXOL [Concomitant]
     Active Substance: PACLITAXEL
     Dosage: WEEKLY
  9. CAPECITABINE. [Concomitant]
     Active Substance: CAPECITABINE
  10. CAELYX [Concomitant]
     Active Substance: DOXORUBICIN HYDROCHLORIDE
  11. ZOLADEX [Suspect]
     Active Substance: GOSERELIN ACETATE
     Indication: METASTASES TO OVARY
     Route: 058
     Dates: start: 2004
  12. TAMOXIFEN [Suspect]
     Active Substance: TAMOXIFEN
     Indication: BREAST CANCER
     Route: 048
     Dates: start: 2000, end: 2001
  13. TAMOXIFEN [Suspect]
     Active Substance: TAMOXIFEN
     Indication: BREAST CANCER
     Route: 048
  14. GEMCITABINE [Concomitant]
     Active Substance: GEMCITABINE\GEMCITABINE HYDROCHLORIDE
  15. CARBOPLATIN. [Concomitant]
     Active Substance: CARBOPLATIN
  16. ADRIAMYCIN [Concomitant]
     Active Substance: DOXORUBICIN HYDROCHLORIDE
  17. ERIBULINE [Concomitant]
     Active Substance: ERIBULIN
  18. ENDOXAN [Concomitant]
     Active Substance: CYCLOPHOSPHAMIDE
  19. CISPLATINE [Concomitant]
     Active Substance: CISPLATIN
  20. RADIATION THERAPY [Concomitant]
     Active Substance: RADIATION THERAPY

REACTIONS (10)
  - Metastases to ovary [Unknown]
  - Metastases to bone [Unknown]
  - Neurotoxicity [Unknown]
  - Metastases to lymph nodes [Unknown]
  - Liver disorder [Fatal]
  - Metastases to bone marrow [Unknown]
  - Metastases to liver [Unknown]
  - Malignant neoplasm progression [Unknown]
  - Metastases to lung [Unknown]
  - Febrile neutropenia [Unknown]

NARRATIVE: CASE EVENT DATE: 2004
